FAERS Safety Report 18455878 (Version 1)
Quarter: 2020Q4

REPORT INFORMATION
  Report Type: Other
  Country: US (occurrence: US)
  Receive Date: 20201103
  Receipt Date: 20201103
  Transmission Date: 20210114
  Serious: Yes (Other)
  Sender: FDA-Public Use
  Company Number: US-ROCHE-2706144

PATIENT
  Sex: Male

DRUGS (1)
  1. TECENTRIQ [Suspect]
     Active Substance: ATEZOLIZUMAB
     Indication: THYROID CANCER
     Dosage: ADMINISTER 1200 MG AS AN INTRAVENOUS INFUSION OVER 60 MINUTES EVERY 3 WEEKS
     Route: 042

REACTIONS (1)
  - Renal impairment [Unknown]
